FAERS Safety Report 15125294 (Version 2)
Quarter: 2018Q3

REPORT INFORMATION
  Report Type: Spontaneous
  Country: FR (occurrence: FR)
  Receive Date: 20180710
  Receipt Date: 20180710
  Transmission Date: 20181010
  Serious: Yes (Death)
  Sender: FDA-Public Use
  Company Number: FR-B. BRAUN MEDICAL INC.-2051644

PATIENT
  Age: 31 Year
  Sex: Male
  Weight: 95 kg

DRUGS (19)
  1. CYTARABINE. [Suspect]
     Active Substance: CYTARABINE
     Route: 042
     Dates: start: 20180525, end: 20180526
  2. NPLATE [Concomitant]
     Active Substance: ROMIPLOSTIM
  3. CUBICIN [Suspect]
     Active Substance: DAPTOMYCIN
     Route: 042
     Dates: start: 20180529, end: 20180607
  4. ETOPOSIDE. [Suspect]
     Active Substance: ETOPOSIDE
     Route: 042
     Dates: start: 20180524, end: 20180524
  5. IMIPENEM CILASTATINE ?PANPHARMA [Suspect]
     Active Substance: CILASTATIN SODIUM\IMIPENEM
     Route: 042
     Dates: start: 20180526, end: 20180607
  6. ONDANSETRON ACCORD [Suspect]
     Active Substance: ONDANSETRON
     Route: 042
     Dates: start: 20180523, end: 20180606
  7. ZELITREX [Suspect]
     Active Substance: VALACYCLOVIR HYDROCHLORIDE
     Route: 048
     Dates: start: 20180525, end: 20180604
  8. GRANOCYTE [LENOGRASTIM] [Concomitant]
  9. IFOSFAMIDE. [Suspect]
     Active Substance: IFOSFAMIDE
     Route: 042
     Dates: start: 20180525, end: 20180525
  10. TRIMEBUTINE [Concomitant]
     Active Substance: TRIMEBUTINE
  11. FLUIMUCIL [ACETYLCYSTEINE,?THIAMPHENICOL GLYCINATE?ACETYLCYSTEINE] [Concomitant]
  12. OXYCODONE [Concomitant]
     Active Substance: OXYCODONE
  13. METHYLPREDNISOLONE. [Concomitant]
     Active Substance: METHYLPREDNISOLONE
  14. METRONIDAZOLE INJECTION USP (5 MG/ML) IN PAB? PLASTIC CONTAINER (NDA 0 [Suspect]
     Active Substance: METRONIDAZOLE
     Indication: PROPHYLAXIS
     Route: 042
     Dates: start: 20180518, end: 20180607
  15. SCOPOLAMINE [Concomitant]
     Active Substance: SCOPOLAMINE
  16. ZOLEDRONIC ACID?MONOHYDRATE [Concomitant]
  17. VANCOMYCINE SANDOZ 500 MG, POUDRE POUR SOLUTION POUR PERFUSION [Suspect]
     Active Substance: VANCOMYCIN HYDROCHLORIDE
     Route: 042
     Dates: start: 20180518, end: 20180608
  18. EXACYL [TRANEXAMIC ACID] [Concomitant]
  19. MIDAZOLAM [Concomitant]
     Active Substance: MIDAZOLAM HYDROCHLORIDE

REACTIONS (1)
  - Hepatitis cholestatic [Fatal]

NARRATIVE: CASE EVENT DATE: 20180529
